FAERS Safety Report 6588815-5 (Version None)
Quarter: 2010Q1

REPORT INFORMATION
  Report Type: 
  Country: None (occurrence: None)
  Receive Date: 20100212
  Receipt Date: 20100129
  Transmission Date: 20100710
  Serious: Yes (Life-Threatening, Hospitalization)
  Sender: FDA-Public Use
  Company Number: 2010AL000727

PATIENT
  Age: 28 Year
  Sex: Male

DRUGS (7)
  1. LORAZEPAM [Suspect]
     Indication: ANXIETY
     Dosage: PRN; PO
     Route: 048
     Dates: start: 20050114
  2. CHLORPROMAZINE HCL [Suspect]
  3. ZOPICLONE [Concomitant]
  4. ABILIFY [Concomitant]
  5. NOVOMIX [Concomitant]
  6. MIXTARD HUMAN 70/30 [Concomitant]
  7. VENLAFAXINE [Concomitant]

REACTIONS (2)
  - MULTIPLE DRUG OVERDOSE INTENTIONAL [None]
  - SUICIDE ATTEMPT [None]
